FAERS Safety Report 6280438-0 (Version None)
Quarter: 2009Q3

REPORT INFORMATION
  Report Type: 
  Country: None (occurrence: None)
  Receive Date: 20090724
  Receipt Date: 20090121
  Transmission Date: 20100115
  Serious: No
  Sender: FDA-Public Use
  Company Number: A0323131A

PATIENT
  Age: 74 Year
  Sex: Male
  Weight: 99.77 kg

DRUGS (3)
  1. AVANDIA [Suspect]
     Dosage: 4MG PER DAY
     Route: 048
     Dates: start: 20000201
  2. DIOVAN [Concomitant]
     Dosage: 160MG PER DAY
  3. AMARYL [Concomitant]
     Route: 048

REACTIONS (6)
  - BLOOD PRESSURE INCREASED [None]
  - DIARRHOEA [None]
  - FEELING ABNORMAL [None]
  - GASTRIC DISORDER [None]
  - RHINORRHOEA [None]
  - TENSION HEADACHE [None]
